FAERS Safety Report 13552923 (Version 2)
Quarter: 2017Q2

REPORT INFORMATION
  Report Type: Spontaneous
  Country: US (occurrence: US)
  Receive Date: 20170517
  Receipt Date: 20170613
  Transmission Date: 20170830
  Serious: No
  Sender: FDA-Public Use
  Company Number: US-PFIZER INC-2017207961

PATIENT
  Age: 68 Year
  Sex: Female
  Weight: 59 kg

DRUGS (1)
  1. EUCRISA [Suspect]
     Active Substance: CRISABOROLE
     Indication: SKIN DISORDER
     Dosage: UNK, 2X/DAY
     Dates: start: 20170428

REACTIONS (1)
  - Application site pain [Unknown]

NARRATIVE: CASE EVENT DATE: 20170428
